FAERS Safety Report 4764686-4 (Version None)
Quarter: 2005Q3

REPORT INFORMATION
  Report Type: 
  Country: None (occurrence: None)
  Receive Date: 20050909
  Receipt Date: 20030605
  Transmission Date: 20060218
  Serious: Yes (Hospitalization, Disabling, Other)
  Sender: FDA-Public Use
  Company Number: US-MERCK-0306USA00623

PATIENT
  Age: 72 Year
  Sex: Female

DRUGS (1)
  1. VIOXX [Suspect]
     Route: 048
     Dates: start: 19990801, end: 20000601

REACTIONS (18)
  - ADVERSE EVENT [None]
  - ANGINA PECTORIS [None]
  - ASTHMA [None]
  - BLOOD PRESSURE INCREASED [None]
  - BRONCHITIS ACUTE [None]
  - CEREBROVASCULAR ACCIDENT [None]
  - CHOLECYSTITIS ACUTE [None]
  - CHOLELITHIASIS [None]
  - CONVULSION [None]
  - DIVERTICULUM INTESTINAL [None]
  - HYDRONEPHROSIS [None]
  - HYPERLIPIDAEMIA [None]
  - INCISION SITE CELLULITIS [None]
  - INTESTINAL HAEMORRHAGE [None]
  - NEPHROLITHIASIS [None]
  - OBESITY [None]
  - PANNICULITIS [None]
  - STAPHYLOCOCCAL INFECTION [None]
